FAERS Safety Report 5735927-1 (Version None)
Quarter: 2008Q2

REPORT INFORMATION
  Report Type: 
  Country: None (occurrence: None)
  Receive Date: 20080509
  Receipt Date: 20080428
  Transmission Date: 20081010
  Serious: Yes (Other)
  Sender: FDA-Public Use
  Company Number: CHPA2008US07418

PATIENT
  Sex: Male

DRUGS (1)
  1. PERDIEM OVERNIGHT RELIEF PILLS (SENNA GLYCOSIDES (CA SALTS OF PURIFIED [Suspect]
     Indication: CONSTIPATION
     Dosage: 75 MG, QHS, ORAL
     Route: 048
     Dates: start: 19830101

REACTIONS (2)
  - HYPERTENSION [None]
  - OVERDOSE [None]
